FAERS Safety Report 20411270 (Version 1)
Quarter: 2022Q1

REPORT INFORMATION
  Report Type: Spontaneous
  Country: US (occurrence: US)
  Receive Date: 20220201
  Receipt Date: 20220201
  Transmission Date: 20220424
  Serious: Yes (Death, Other)
  Sender: FDA-Public Use
  Company Number: US-ELI_LILLY_AND_COMPANY-US202201009736

PATIENT
  Age: 66 Year
  Sex: Male
  Weight: 76.5 kg

DRUGS (3)
  1. BARICITINIB [Suspect]
     Active Substance: BARICITINIB
     Indication: COVID-19
     Dosage: 4 MG, UNKNOWN
     Route: 065
     Dates: start: 20220107, end: 20220116
  2. REMDESIVIR [Concomitant]
     Active Substance: REMDESIVIR
     Indication: Product used for unknown indication
     Dosage: UNK
     Dates: start: 20220105, end: 20220107
  3. DEXAMETHASONE [Concomitant]
     Active Substance: DEXAMETHASONE
     Indication: Product used for unknown indication
     Dosage: UNK
     Dates: start: 20220105, end: 20220114

REACTIONS (6)
  - Death [Fatal]
  - Atrial fibrillation [Unknown]
  - Citrobacter test positive [Unknown]
  - Staphylococcus test positive [Unknown]
  - Haemophilus test positive [Unknown]
  - Aspergillus test positive [Unknown]
